FAERS Safety Report 7951155-3 (Version None)
Quarter: 2011Q4

REPORT INFORMATION
  Report Type: 
  Country: None (occurrence: None)
  Receive Date: 20111123
  Receipt Date: 20111111
  Transmission Date: 20120403
  Serious: Yes (Hospitalization)
  Sender: FDA-Public Use
  Company Number: DSA_48086_2011

PATIENT
  Sex: Female
  Weight: 3.6741 kg

DRUGS (3)
  1. PRENATAL VITAMINS /01549301/ [Concomitant]
  2. WELLBUTRIN [Suspect]
     Indication: ANTIDEPRESSANT THERAPY
     Dosage: (75 MG, TRANSPLACENTAL)
     Route: 064
  3. WELLBUTRIN [Suspect]
     Indication: ANXIETY
     Dosage: (75 MG, TRANSPLACENTAL)
     Route: 064

REACTIONS (11)
  - BREECH PRESENTATION [None]
  - GRAND MAL CONVULSION [None]
  - FEEDING DISORDER NEONATAL [None]
  - BLOOD CORTISOL DECREASED [None]
  - HYPERINSULINISM [None]
  - HYPOGLYCAEMIA [None]
  - CAESAREAN SECTION [None]
  - LETHARGY [None]
  - MATERNAL DRUGS AFFECTING FOETUS [None]
  - BLOOD KETONE BODY DECREASED [None]
  - FREE FATTY ACIDS DECREASED [None]
